FAERS Safety Report 9240307 (Version 1)
Quarter: 2013Q1

REPORT INFORMATION
  Report Type: Spontaneous
  Country: US (occurrence: None)
  Receive Date: 20121102
  Receipt Date: 20121102
  Transmission Date: 20140127
  Serious: Yes (Hospitalization)
  Sender: FDA-Public Use
  Company Number: 133227

PATIENT
  Age: 63 Year
  Sex: Female
  Weight: 76 kg

DRUGS (1)
  1. LEUCOVORIN CALCIUM [Suspect]
     Dates: start: 20111214, end: 20120314

REACTIONS (2)
  - Infection [None]
  - Cystitis [None]
